FAERS Safety Report 5924853-0 (Version None)
Quarter: 2008Q4

REPORT INFORMATION
  Report Type: 
  Country: None (occurrence: None)
  Receive Date: 20081020
  Receipt Date: 20081020
  Transmission Date: 20090506
  Serious: Yes (Other)
  Sender: FDA-Public Use
  Company Number: None

PATIENT
  Age: 56 Year
  Sex: Female
  Weight: 58.514 kg

DRUGS (2)
  1. PRISTIQ [Suspect]
     Indication: DEPRESSION
     Dosage: 50MG  ONCE DAILY PO
     Route: 048
     Dates: start: 20080615, end: 20081015
  2. PRISTIQ [Suspect]
     Indication: INSOMNIA
     Dosage: 50MG  ONCE DAILY PO
     Route: 048
     Dates: start: 20080615, end: 20081015

REACTIONS (6)
  - BALANCE DISORDER [None]
  - HEADACHE [None]
  - INCORRECT DOSE ADMINISTERED [None]
  - NAUSEA [None]
  - TINNITUS [None]
  - VERTIGO [None]
